FAERS Safety Report 10029574 (Version 1)
Quarter: 2014Q1

REPORT INFORMATION
  Report Type: Spontaneous
  Country: US (occurrence: None)
  Receive Date: 20140320
  Receipt Date: 20140320
  Transmission Date: 20141002
  Serious: Yes (Other)
  Sender: FDA-Public Use
  Company Number: None

PATIENT
  Age: 59 Year
  Sex: Female
  Weight: 63.5 kg

DRUGS (1)
  1. CLINDAMYCIN [Suspect]
     Indication: WOUND INFECTION
     Dosage: 1PILL
     Route: 048
     Dates: start: 20140317, end: 20140319

REACTIONS (1)
  - Vaginal haemorrhage [None]
